FAERS Safety Report 10486464 (Version 6)
Quarter: 2015Q2

REPORT INFORMATION
  Report Type: Spontaneous
  Country: US (occurrence: US)
  Receive Date: 20141001
  Receipt Date: 20150428
  Transmission Date: 20150821
  Serious: No
  Sender: FDA-Public Use
  Company Number: US-PFIZER INC-2014268328

PATIENT
  Age: 7 Year
  Sex: Male
  Weight: 82 kg

DRUGS (4)
  1. TETRACYCLINE HCL [Suspect]
     Active Substance: TETRACYCLINE HYDROCHLORIDE
     Indication: PYREXIA
     Dosage: 10 MG, 3X/DAY
     Dates: start: 1973, end: 1979
  2. TETRACYCLINE HCL [Suspect]
     Active Substance: TETRACYCLINE HYDROCHLORIDE
     Indication: RESPIRATORY TRACT INFECTION
  3. TETRACYCLINE HCL [Suspect]
     Active Substance: TETRACYCLINE HYDROCHLORIDE
     Indication: INFLUENZA
     Dosage: UNK, 2X/DAY
     Dates: start: 1972, end: 1975
  4. TETRACYCLINE HCL [Suspect]
     Active Substance: TETRACYCLINE HYDROCHLORIDE
     Indication: OROPHARYNGEAL PAIN

REACTIONS (2)
  - Tooth discolouration [Not Recovered/Not Resolved]
  - Product label issue [Not Recovered/Not Resolved]

NARRATIVE: CASE EVENT DATE: 197910
